FAERS Safety Report 18250205 (Version 1)
Quarter: 2020Q3

REPORT INFORMATION
  Report Type: Spontaneous
  Country: US (occurrence: US)
  Receive Date: 20200909
  Receipt Date: 20200909
  Transmission Date: 20201103
  Serious: Yes (Hospitalization, Other)
  Sender: FDA-Public Use
  Company Number: US-PURDUE-USA-2020-0165202

PATIENT
  Age: 52 Year
  Sex: Male

DRUGS (2)
  1. OXYCODONE HYDROCHLORIDE (SIMILAR TO NDA 22?272) [Suspect]
     Active Substance: OXYCODONE HYDROCHLORIDE
     Indication: ARTHRALGIA
     Dosage: UNK
     Route: 048
  2. OXYCONTIN [Suspect]
     Active Substance: OXYCODONE HYDROCHLORIDE
     Indication: ARTHRALGIA
     Dosage: UNK
     Route: 048
     Dates: start: 200601, end: 201207

REACTIONS (12)
  - Drug dependence [Unknown]
  - Dental caries [Unknown]
  - Suicide attempt [Unknown]
  - Anger [Unknown]
  - Tooth loss [Unknown]
  - Mental impairment [Unknown]
  - Amnesia [Unknown]
  - Judgement impaired [Unknown]
  - Depression [Unknown]
  - Neurological decompensation [Unknown]
  - Intentional overdose [Unknown]
  - Mood swings [Unknown]

NARRATIVE: CASE EVENT DATE: 201210
